FAERS Safety Report 4474815-8 (Version None)
Quarter: 2004Q4

REPORT INFORMATION
  Report Type: 
  Country: None (occurrence: None)
  Receive Date: 20041014
  Receipt Date: 20041005
  Transmission Date: 20050328
  Serious: Yes (Hospitalization, Other)
  Sender: FDA-Public Use
  Company Number: BR-MERCK-0410BRA00231

PATIENT
  Age: 50 Year
  Sex: Male

DRUGS (4)
  1. VENALOT [Concomitant]
     Route: 065
  2. DAFLON (DIOSMIN (+) HESPERIDIN) [Concomitant]
     Indication: ANGIOPATHY
     Route: 065
  3. VIOXX [Suspect]
     Indication: OSTEOPOROSIS
     Route: 048
     Dates: start: 19990101, end: 20030301
  4. VIOXX [Suspect]
     Indication: FEMUR FRACTURE
     Route: 048
     Dates: start: 19990101, end: 20030301

REACTIONS (4)
  - ERYTHEMA [None]
  - HYPERTENSIVE CRISIS [None]
  - MALAISE [None]
  - VARICOSE ULCERATION [None]
